FAERS Safety Report 8571925-0 (Version None)
Quarter: 2012Q3

REPORT INFORMATION
  Report Type: 
  Country: None (occurrence: None)
  Receive Date: 20120806
  Receipt Date: 20120729
  Transmission Date: 20120928
  Serious: Yes (Life-Threatening, Other)
  Sender: FDA-Public Use
  Company Number: US-PFIZER INC-2012185610

PATIENT
  Sex: Female

DRUGS (1)
  1. DILANTIN-125 [Suspect]

REACTIONS (4)
  - HEPATITIS [None]
  - TUBULOINTERSTITIAL NEPHRITIS [None]
  - STEVENS-JOHNSON SYNDROME [None]
  - HYPERSENSITIVITY [None]
